FAERS Safety Report 5381715-8 (Version None)
Quarter: 2007Q3

REPORT INFORMATION
  Report Type: 
  Country: None (occurrence: None)
  Receive Date: 20070709
  Receipt Date: 20070629
  Transmission Date: 20080115
  Serious: Yes (Other)
  Sender: FDA-Public Use
  Company Number: PHEH2005US04361

PATIENT
  Age: 65 Year
  Sex: Female
  Weight: 70.748 kg

DRUGS (13)
  1. MPA [Suspect]
     Indication: MENOPAUSAL SYMPTOMS
     Dates: start: 20030123, end: 20031023
  2. PREMPRO [Suspect]
     Indication: MENOPAUSAL SYMPTOMS
     Dosage: 0.625/2.5 MG
     Route: 048
     Dates: start: 19970611, end: 20021111
  3. PREMARIN [Suspect]
     Indication: MENOPAUSAL SYMPTOMS
     Dosage: 1.25-6.25 MG
     Route: 048
     Dates: start: 19881014, end: 20031020
  4. PROVERA [Suspect]
     Indication: MENOPAUSAL SYMPTOMS
     Dosage: 10-2.5 MG
     Route: 048
     Dates: start: 19881014, end: 19960318
  5. ESTRADERM [Suspect]
     Indication: MENOPAUSAL SYMPTOMS
     Dosage: .1 MG, UNK
     Route: 062
     Dates: start: 19921001, end: 19950901
  6. PREMARIN [Suspect]
     Indication: MENOPAUSAL SYMPTOMS
     Route: 061
     Dates: start: 20000801, end: 20021001
  7. FLUOXETINE [Concomitant]
  8. FUROSEMIDE [Concomitant]
  9. DIAZEPAM [Concomitant]
  10. PROZAC [Concomitant]
     Dosage: 20 MG, UNK
  11. VALIUM [Concomitant]
  12. LASIX [Concomitant]
     Dosage: 40 MG, UNK
  13. EFFEXOR [Concomitant]
     Dosage: 75 MG, UNK

REACTIONS (28)
  - ARTHRALGIA [None]
  - BIOPSY BREAST ABNORMAL [None]
  - BREAST CANCER [None]
  - BRONCHOSCOPY ABNORMAL [None]
  - CHEMOTHERAPY [None]
  - COMPUTERISED TOMOGRAM ABNORMAL [None]
  - CONFUSIONAL STATE [None]
  - COUGH [None]
  - DEPRESSION [None]
  - FATIGUE [None]
  - HILAR LYMPHADENOPATHY [None]
  - HOT FLUSH [None]
  - INSOMNIA [None]
  - LUNG ADENOCARCINOMA STAGE II [None]
  - MAMMOGRAM ABNORMAL [None]
  - MASTECTOMY [None]
  - METASTATIC NEOPLASM [None]
  - MOOD SWINGS [None]
  - NON-SMALL CELL LUNG CANCER RECURRENT [None]
  - OESTROGEN RECEPTOR ASSAY POSITIVE [None]
  - OSTEOARTHRITIS [None]
  - POSITRON EMISSION TOMOGRAM ABNORMAL [None]
  - PROGESTERONE RECEPTOR ASSAY POSITIVE [None]
  - RADIOTHERAPY [None]
  - SELF ESTEEM DECREASED [None]
  - UTERINE DILATION AND CURETTAGE [None]
  - UTERINE LEIOMYOMA [None]
  - WEIGHT INCREASED [None]
